FAERS Safety Report 15170090 (Version 1)
Quarter: 2018Q3

REPORT INFORMATION
  Report Type: Spontaneous
  Country: US (occurrence: US)
  Receive Date: 20180720
  Receipt Date: 20180720
  Transmission Date: 20181010
  Serious: No
  Sender: FDA-Public Use
  Company Number: US-PFIZER INC-2018291947

PATIENT
  Age: 74 Year
  Sex: Female
  Weight: 66.68 kg

DRUGS (1)
  1. GABAPENTIN. [Suspect]
     Active Substance: GABAPENTIN
     Indication: POST HERPETIC NEURALGIA
     Dosage: UNK, 3X/DAY

REACTIONS (2)
  - Weight decreased [Unknown]
  - Drug ineffective [Recovering/Resolving]
